FAERS Safety Report 9296340 (Version 1)
Quarter: 2013Q2

REPORT INFORMATION
  Report Type: Not Available
  Country: SE (occurrence: SE)
  Receive Date: 20130517
  Receipt Date: 20130517
  Transmission Date: 20140414
  Serious: Yes (Hospitalization)
  Sender: FDA-Public Use
  Company Number: SE-NAPPMUNDI-GBR-2013-0014000

PATIENT
  Age: 77 Year
  Sex: Male

DRUGS (12)
  1. TRIATEC /00885601/ [Interacting]
     Indication: PRODUCT USED FOR UNKNOWN INDICATION
     Dosage: UNK
     Dates: start: 20120911, end: 20120911
  2. STESOLID [Interacting]
     Indication: PREMEDICATION
     Route: 065
  3. INSULATARD                         /00646002/ [Concomitant]
     Route: 042
  4. OMEPRAZOLE [Concomitant]
  5. FELODIPINE [Concomitant]
  6. FOLACIN                            /00024201/ [Concomitant]
  7. BEHEPAN [Concomitant]
  8. DUROFERON [Concomitant]
  9. FURIX [Concomitant]
  10. EMCONCOR [Concomitant]
  11. IMDUR [Concomitant]
  12. MORPHINE [Suspect]
     Indication: PREMEDICATION
     Dosage: UNK
     Route: 065
     Dates: start: 20120911

REACTIONS (3)
  - Drug interaction [Recovered/Resolved]
  - Angioedema [Recovered/Resolved]
  - Hypersensitivity [Recovered/Resolved]
